FAERS Safety Report 22095687 (Version 4)
Quarter: 2024Q1

REPORT INFORMATION
  Report Type: Spontaneous
  Country: US (occurrence: US)
  Receive Date: 20230314
  Receipt Date: 20240109
  Transmission Date: 20240409
  Serious: No
  Sender: FDA-Public Use
  Company Number: US-PFIZER INC-PV202300045828

PATIENT
  Age: 65 Year
  Sex: Female

DRUGS (1)
  1. XELJANZ XR [Suspect]
     Active Substance: TOFACITINIB CITRATE
     Dosage: UNK

REACTIONS (6)
  - Drug ineffective [Unknown]
  - Fatigue [Unknown]
  - Contusion [Unknown]
  - Increased tendency to bruise [Unknown]
  - Pain [Unknown]
  - Arthralgia [Unknown]
